FAERS Safety Report 24927381 (Version 1)
Quarter: 2025Q1

REPORT INFORMATION
  Report Type: Report from Study
  Country: US (occurrence: US)
  Receive Date: 20250205
  Receipt Date: 20250205
  Transmission Date: 20250408
  Serious: Yes (Other)
  Sender: ABBVIE
  Company Number: US-ABBVIE-6111352

PATIENT
  Age: 62 Year
  Sex: Female

DRUGS (1)
  1. SKYRIZI [Suspect]
     Active Substance: RISANKIZUMAB-RZAA
     Indication: Product used for unknown indication
     Route: 058
     Dates: start: 20240830

REACTIONS (5)
  - Knee operation [Recovering/Resolving]
  - Pain [Unknown]
  - Fall [Unknown]
  - Contusion [Unknown]
  - Face injury [Unknown]

NARRATIVE: CASE EVENT DATE: 20240101
